FAERS Safety Report 8151127-2 (Version None)
Quarter: 2012Q1

REPORT INFORMATION
  Report Type: 
  Country: None (occurrence: None)
  Receive Date: 20120220
  Receipt Date: 20120208
  Transmission Date: 20120608
  Serious: Yes (Congenital Anomaly)
  Sender: FDA-Public Use
  Company Number: US-VIIV HEALTHCARE LIMITED-A0946657A

PATIENT
  Sex: Female
  Weight: 1.3 kg

DRUGS (4)
  1. MULTI-VITAMINS [Concomitant]
  2. KALETRA [Suspect]
     Indication: HIV INFECTION
     Dosage: 4TAB PER DAY
     Route: 064
     Dates: start: 20110304
  3. COMBIVIR [Suspect]
     Indication: HIV INFECTION
     Dosage: 2TAB PER DAY
     Route: 064
     Dates: start: 20110304
  4. METRONIDAZOLE [Concomitant]

REACTIONS (2)
  - FOETAL EXPOSURE DURING PREGNANCY [None]
  - MASS [None]
